FAERS Safety Report 18265701 (Version 1)
Quarter: 2020Q3

REPORT INFORMATION
  Report Type: Spontaneous
  Country: US (occurrence: US)
  Receive Date: 20200914
  Receipt Date: 20200914
  Transmission Date: 20201103
  Serious: No
  Sender: FDA-Public Use
  Company Number: US-JIANGSU HENGRUI MEDICINE CO., LTD.-2090702

PATIENT
  Age: 24 Month

DRUGS (7)
  1. IFOSFAMIDE. [Suspect]
     Active Substance: IFOSFAMIDE
  2. VINORELBINE [Suspect]
     Active Substance: VINORELBINE TARTRATE
  3. VINCRISTINE [Suspect]
     Active Substance: VINCRISTINE
  4. DOXORUBICIN [Suspect]
     Active Substance: DOXORUBICIN
  5. ETOPOSIDE. [Suspect]
     Active Substance: ETOPOSIDE
  6. TEMSIROLIMUS. [Suspect]
     Active Substance: TEMSIROLIMUS
  7. CYCLOPHOSPHAMIDE FOR INJECTION USP, 500 MG, 1 G AND 2 G PER SINGLE?DOS [Suspect]
     Active Substance: CYCLOPHOSPHAMIDE
     Indication: RHABDOMYOSARCOMA RECURRENT

REACTIONS (2)
  - Hepatic lesion [Unknown]
  - Therapeutic product effect decreased [Unknown]
